FAERS Safety Report 17792194 (Version 6)
Quarter: 2020Q3

REPORT INFORMATION
  Report Type: Spontaneous
  Country: US (occurrence: US)
  Receive Date: 20200515
  Receipt Date: 20200813
  Transmission Date: 20201102
  Serious: No
  Sender: FDA-Public Use
  Company Number: US-PFIZER INC-2020194691

PATIENT
  Age: 66 Year
  Sex: Female

DRUGS (3)
  1. IBRANCE [Suspect]
     Active Substance: PALBOCICLIB
     Dosage: 100 MG
     Dates: start: 20200204
  2. IBRANCE [Suspect]
     Active Substance: PALBOCICLIB
     Dosage: 100 MG
     Dates: start: 20200603
  3. IBRANCE [Suspect]
     Active Substance: PALBOCICLIB
     Dosage: 125 MG
     Dates: start: 20180204

REACTIONS (11)
  - Pain [Unknown]
  - Onychoclasis [Unknown]
  - Fatigue [Unknown]
  - Chest pain [Unknown]
  - Blepharitis [Unknown]
  - Eyelids pruritus [Unknown]
  - White blood cell count decreased [Unknown]
  - Eyelid skin dryness [Unknown]
  - Dyspnoea [Unknown]
  - Headache [Unknown]
  - Product dose omission issue [Unknown]
